FAERS Safety Report 26100469 (Version 1)
Quarter: 2025Q4

REPORT INFORMATION
  Report Type: Spontaneous
  Country: US (occurrence: US)
  Receive Date: 20251128
  Receipt Date: 20251128
  Transmission Date: 20260118
  Serious: No
  Sender: ABBVIE
  Company Number: US-ABBVIE-6561092

PATIENT
  Age: 53 Year
  Sex: Female

DRUGS (2)
  1. PREDNISOLONE ACETATE [Suspect]
     Active Substance: PREDNISOLONE ACETATE
     Indication: Eye inflammation
     Dosage: TIME INTERVAL: 0.33333333 DAYS: 1 DROP IN EACH EYE?1%
     Route: 047
     Dates: start: 20250530
  2. PREDNISOLONE ACETATE [Suspect]
     Active Substance: PREDNISOLONE ACETATE
     Indication: Ulcerative keratitis

REACTIONS (2)
  - Foreign body in eye [Recovered/Resolved]
  - Liquid product physical issue [Not Recovered/Not Resolved]

NARRATIVE: CASE EVENT DATE: 20251115
